FAERS Safety Report 5255157-X (Version None)
Quarter: 2007Q1

REPORT INFORMATION
  Report Type: 
  Country: None (occurrence: None)
  Receive Date: 20070305
  Receipt Date: 20070223
  Transmission Date: 20070707
  Serious: Yes (Other)
  Sender: FDA-Public Use
  Company Number: NO-AVENTIS-200711561GDDC

PATIENT
  Age: 69 Year
  Sex: Female

DRUGS (4)
  1. GLIMEPIRIDE [Suspect]
     Dosage: DOSE: UNK
  2. HYDROCHLOROTHIAZIDE [Suspect]
     Indication: HYPERTENSION
  3. LOSARTAN POTASSIUM [Suspect]
  4. METFORMIN [Suspect]

REACTIONS (4)
  - DIARRHOEA [None]
  - LACTIC ACIDOSIS [None]
  - NAUSEA [None]
  - RENAL FAILURE ACUTE [None]
